FAERS Safety Report 15523063 (Version 3)
Quarter: 2018Q4

REPORT INFORMATION
  Report Type: Spontaneous
  Country: DE (occurrence: DE)
  Receive Date: 20181017
  Receipt Date: 20181218
  Transmission Date: 20190205
  Serious: Yes (Disabling, Other)
  Sender: FDA-Public Use
  Company Number: PHHY2018DE127539

PATIENT
  Sex: Male

DRUGS (1)
  1. LEVOFLOXACIN - 1 A PHARMA [Suspect]
     Active Substance: LEVOFLOXACIN
     Indication: URINARY TRACT INFECTION
     Dosage: 500 MG, BID (2X 500 MG DAILY)
     Route: 065
     Dates: start: 20180903, end: 20180905

REACTIONS (3)
  - Tendon disorder [Recovering/Resolving]
  - Tendon pain [Recovering/Resolving]
  - Walking disability [Not Recovered/Not Resolved]

NARRATIVE: CASE EVENT DATE: 20180911
